FAERS Safety Report 13474668 (Version 1)
Quarter: 2017Q2

REPORT INFORMATION
  Report Type: Report from Study
  Country: US (occurrence: US)
  Receive Date: 20170424
  Receipt Date: 20170424
  Transmission Date: 20170830
  Serious: Yes (Other)
  Sender: FDA-Public Use
  Company Number: US-GILEAD-2016-0225856

PATIENT
  Age: 86 Year
  Sex: Female

DRUGS (1)
  1. RANOLAZINE. [Suspect]
     Active Substance: RANOLAZINE
     Indication: ANGINA PECTORIS
     Dosage: 500 MG, UNK
     Route: 048

REACTIONS (5)
  - Myocardial infarction [Unknown]
  - Unevaluable event [Not Recovered/Not Resolved]
  - Drug dose omission [Unknown]
  - Neoplasm malignant [Unknown]
  - Chest pain [Unknown]
